FAERS Safety Report 5654249-0 (Version None)
Quarter: 2008Q1

REPORT INFORMATION
  Report Type: 
  Country: None (occurrence: None)
  Receive Date: 20080305
  Receipt Date: 20080225
  Transmission Date: 20080703
  Serious: Yes (Hospitalization)
  Sender: FDA-Public Use
  Company Number: 163-21880-08021493

PATIENT
  Age: 67 Year
  Sex: Female

DRUGS (2)
  1. REVLIMID [Suspect]
     Indication: MYELODYSPLASTIC SYNDROME
     Dosage: 5 MG ORAL'; EVERY 3 DAYS ORAL
     Route: 048
     Dates: start: 20070720, end: 20070101
  2. REVLIMID [Suspect]
     Indication: MYELODYSPLASTIC SYNDROME
     Dosage: 5 MG ORAL'; EVERY 3 DAYS ORAL
     Route: 048
     Dates: start: 20070101

REACTIONS (2)
  - HYPERTENSION [None]
  - RENAL FAILURE [None]
